FAERS Safety Report 6352676-X (Version None)
Quarter: 2009Q3

REPORT INFORMATION
  Report Type: 
  Country: None (occurrence: None)
  Receive Date: 20090912
  Receipt Date: 20090622
  Transmission Date: 20100115
  Serious: No
  Sender: FDA-Public Use
  Company Number: US-ABBOTT-08P-163-0444712-00

PATIENT
  Sex: Male
  Weight: 76.272 kg

DRUGS (3)
  1. HUMIRA [Suspect]
     Indication: RHEUMATOID ARTHRITIS
     Route: 058
     Dates: start: 20040201
  2. METHOTREXATE [Concomitant]
     Indication: RHEUMATOID ARTHRITIS
     Route: 048
     Dates: start: 20040101
  3. FOLIC ACID [Concomitant]
     Indication: MEDICAL DIET
     Dosage: DAILY
     Route: 048
     Dates: start: 20040101

REACTIONS (1)
  - INCORRECT DOSE ADMINISTERED [None]
